FAERS Safety Report 26102920 (Version 1)
Quarter: 2025Q4

REPORT INFORMATION
  Report Type: Spontaneous
  Country: EU (occurrence: EU)
  Receive Date: 20251128
  Receipt Date: 20251128
  Transmission Date: 20260119
  Serious: Yes (Congenital Anomaly)
  Sender: ABBVIE
  Company Number: EU-EMB-M202406859-1

PATIENT
  Weight: 2.138 kg

DRUGS (3)
  1. MESALAMINE [Suspect]
     Active Substance: MESALAMINE
     Indication: Maternal exposure timing unspecified
     Dosage: PATIENT ROA: TRANSPLACENTAL
     Route: 065
  2. AZATHIOPRINE [Suspect]
     Active Substance: AZATHIOPRINE
     Indication: Maternal exposure timing unspecified
     Dosage: ROA: TRANSPLACENTAL
     Route: 065
  3. PROGESTERONE [Suspect]
     Active Substance: PROGESTERONE
     Indication: Maternal exposure timing unspecified
     Dosage: PATIENT ROA: TRANSPLACENTAL
     Route: 065

REACTIONS (4)
  - Congenital coronary artery malformation [Not Recovered/Not Resolved]
  - Pectus excavatum [Recovering/Resolving]
  - Foetal exposure during pregnancy [Unknown]
  - Atrial septal defect [Recovered/Resolved]

NARRATIVE: CASE EVENT DATE: 20240801
